FAERS Safety Report 20328561 (Version 1)
Quarter: 2022Q1

REPORT INFORMATION
  Report Type: Spontaneous
  Country: CN (occurrence: CN)
  Receive Date: 20220112
  Receipt Date: 20220112
  Transmission Date: 20220423
  Serious: Yes (Other)
  Sender: FDA-Public Use
  Company Number: CN-PFIZER INC-202101880556

PATIENT
  Age: 36 Year
  Sex: Female

DRUGS (3)
  1. METHYLPREDNISOLONE [Suspect]
     Active Substance: METHYLPREDNISOLONE
     Dosage: 60 MG, 1X/DAY
  2. VANCOMYCIN [Concomitant]
     Active Substance: VANCOMYCIN
     Indication: Anti-infective therapy
  3. IMMUNE GLOBULIN NOS [Concomitant]
     Active Substance: IMMUNE GLOBULIN NOS
     Dosage: 5 G, 1X/DAY
     Route: 042

REACTIONS (1)
  - Epilepsy [Recovering/Resolving]
